FAERS Safety Report 4470758-4 (Version None)
Quarter: 2004Q4

REPORT INFORMATION
  Report Type: 
  Country: None (occurrence: None)
  Receive Date: 20041011
  Receipt Date: 20040913
  Transmission Date: 20050328
  Serious: Yes (Death)
  Sender: FDA-Public Use
  Company Number: 200418991GDDC

PATIENT
  Age: 70 Year
  Sex: Female

DRUGS (4)
  1. CLEXANE [Suspect]
     Indication: DEEP VENOUS THROMBOSIS PROPHYLAXIS
     Route: 058
     Dates: start: 20040701
  2. CLEXANE [Suspect]
     Indication: PULMONARY EMBOLISM
     Route: 058
     Dates: start: 20040701
  3. FLAGYL [Concomitant]
  4. DICLOFENAC [Concomitant]

REACTIONS (13)
  - ABDOMINAL ADHESIONS [None]
  - ABDOMINAL MASS [None]
  - ADENOCARCINOMA [None]
  - BILATERAL HYDRONEPHROSIS [None]
  - BLOOD SODIUM DECREASED [None]
  - BLOOD UREA DECREASED [None]
  - CHOLELITHIASIS [None]
  - COLON CANCER RECURRENT [None]
  - HAEMOGLOBIN DECREASED [None]
  - INTESTINAL OBSTRUCTION [None]
  - LARGE INTESTINE PERFORATION [None]
  - PSEUDOMYXOMA PERITONEI [None]
  - TUMOUR HAEMORRHAGE [None]
